FAERS Safety Report 8951298 (Version 4)
Quarter: 2013Q1

REPORT INFORMATION
  Report Type: Report from Study
  Country: US (occurrence: US)
  Receive Date: 20121207
  Receipt Date: 20130301
  Transmission Date: 20140127
  Serious: Yes (Hospitalization, Other)
  Sender: FDA-Public Use
  Company Number: US-ASTELLAS-2012US011723

PATIENT
  Sex: Female

DRUGS (26)
  1. BLINDED ERLOTINIB TABLET [Suspect]
     Indication: LIP AND/OR ORAL CAVITY CANCER RECURRENT
     Dosage: 150 MG, UID/QD
     Route: 048
     Dates: start: 20121115, end: 20121129
  2. BLINDED ERLOTINIB TABLET [Suspect]
     Dosage: 100 MG, UID/QD
     Route: 048
     Dates: start: 20121206
  3. DOCETAXEL [Suspect]
     Indication: LIP AND/OR ORAL CAVITY CANCER RECURRENT
     Dosage: 106 MG, UNKNOWN/D
     Route: 042
     Dates: start: 20121115
  4. DOCETAXEL [Suspect]
     Dosage: 56 MG/M2, UNKNOWN/D
     Route: 042
     Dates: start: 20121206
  5. CISPLATIN [Suspect]
     Indication: LIP AND/OR ORAL CAVITY CANCER RECURRENT
     Dosage: 106 MG, UNKNOWN/D
     Route: 042
     Dates: start: 20121115
  6. CISPLATIN [Suspect]
     Dosage: 60 MG/M2, UNKNOWN/D
     Route: 042
     Dates: start: 20121206
  7. TRAZODONE [Concomitant]
     Indication: PRODUCT USED FOR UNKNOWN INDICATION
     Dosage: 50 MG, QHS
     Route: 048
  8. REQUIP [Concomitant]
     Indication: PRODUCT USED FOR UNKNOWN INDICATION
     Dosage: 0.5-3.0MG, QHS, PRN
     Route: 048
  9. RANITIDINE [Concomitant]
     Indication: PRODUCT USED FOR UNKNOWN INDICATION
     Dosage: 150 MG, BID
     Route: 048
  10. COMPAZINE                          /00013302/ [Concomitant]
     Indication: PRODUCT USED FOR UNKNOWN INDICATION
     Dosage: 10 MG, Q6 HOURS, PRN
     Route: 048
  11. MELOXICAM [Concomitant]
     Indication: PRODUCT USED FOR UNKNOWN INDICATION
     Dosage: 15 MG, UID/QD
     Route: 048
  12. NORCO [Concomitant]
     Indication: PAIN
     Dosage: 10/325, Q6 HOURS, PRN
     Route: 048
  13. FENTANYL [Concomitant]
     Indication: PAIN
     Dosage: 25 UG, Q3D
     Route: 061
  14. VITAMIN B12                        /00056201/ [Concomitant]
     Indication: PRODUCT USED FOR UNKNOWN INDICATION
     Dosage: 2000 UG, UID/QD
     Route: 048
  15. CELEXA                             /00582602/ [Concomitant]
     Indication: PRODUCT USED FOR UNKNOWN INDICATION
     Dosage: 40 MG, UID/QD
     Route: 048
  16. TESSALON PERLE [Concomitant]
     Indication: COUGH
     Dosage: 100 MG, TID, PRN
     Route: 048
  17. ACETAMINOPHEN [Concomitant]
     Indication: PRODUCT USED FOR UNKNOWN INDICATION
     Dosage: 500 MG, BID
     Route: 048
  18. DEXAMETHASONE [Concomitant]
     Indication: PRODUCT USED FOR UNKNOWN INDICATION
     Dosage: 4 MG, Q12 HOURS
     Route: 048
  19. DOC-Q-LACE [Concomitant]
     Indication: CONSTIPATION
     Dosage: 100 MG, BID
     Route: 048
  20. DOXYCYCLINE MONOHYDRATE [Concomitant]
     Indication: PRODUCT USED FOR UNKNOWN INDICATION
     Dosage: 100 MG, BID
     Route: 048
  21. HYDROCODONE/APAP [Concomitant]
     Indication: PAIN
     Dosage: 10/325 MG, PRN
     Route: 048
  22. INTEGRA PLUS [Concomitant]
     Indication: PRODUCT USED FOR UNKNOWN INDICATION
     Dosage: 1000 UG, UID/QD
     Route: 048
  23. NEULASTA [Concomitant]
     Indication: PRODUCT USED FOR UNKNOWN INDICATION
     Dosage: 0.6 ML, TOTAL DOSE
     Route: 058
  24. OMEPRAZOLE [Concomitant]
     Indication: PRODUCT USED FOR UNKNOWN INDICATION
     Dosage: 40 MG, UID/QD
     Route: 048
  25. PROCHLORPERAZINE [Concomitant]
     Indication: NAUSEA
     Dosage: 10 MG, Q6 HOURS, PRN
     Route: 048
  26. PROCHLORPERAZINE [Concomitant]
     Indication: VOMITING

REACTIONS (15)
  - Off label use [Unknown]
  - Hyponatraemia [Recovered/Resolved]
  - Hyperbilirubinaemia [Recovered/Resolved]
  - Hypokalaemia [Recovering/Resolving]
  - Anaemia of chronic disease [Recovering/Resolving]
  - Thrombocytopenia [Recovering/Resolving]
  - Diarrhoea [Recovered/Resolved]
  - Dehydration [Recovering/Resolving]
  - Pyrexia [Recovered/Resolved]
  - Decreased appetite [Recovering/Resolving]
  - Nausea [Recovering/Resolving]
  - Candida test positive [Unknown]
  - Productive cough [Unknown]
  - Stomatitis [Recovering/Resolving]
  - Klebsiella test positive [Unknown]
